FAERS Safety Report 23213779 (Version 1)
Quarter: 2023Q4

REPORT INFORMATION
  Report Type: Spontaneous
  Country: TH (occurrence: TH)
  Receive Date: 20231121
  Receipt Date: 20231121
  Transmission Date: 20240110
  Serious: Yes (Life-Threatening, Hospitalization)
  Sender: FDA-Public Use
  Company Number: TH-STRIDES ARCOLAB LIMITED-2023SP017125

PATIENT
  Age: 8 Decade
  Sex: Male

DRUGS (6)
  1. COLCHICINE [Interacting]
     Active Substance: COLCHICINE
     Indication: Gout
     Dosage: 0.6 MILLIGRAM, PER DAY
     Route: 065
  2. CLARITHROMYCIN [Interacting]
     Active Substance: CLARITHROMYCIN
     Indication: Helicobacter gastritis
     Dosage: 500 MILLIGRAM, BID, 14 DAY COURSE
     Route: 065
  3. AMOXICILLIN [Concomitant]
     Active Substance: AMOXICILLIN
     Indication: Helicobacter gastritis
     Dosage: 1000 MILLIGRAM, BID
     Route: 065
  4. OMEPRAZOLE [Concomitant]
     Active Substance: OMEPRAZOLE
     Indication: Helicobacter gastritis
     Dosage: 40 MILLIGRAM, BID
     Route: 065
  5. ACETAMINOPHEN [Concomitant]
     Active Substance: ACETAMINOPHEN
     Indication: Pain
     Dosage: 500 MILLIGRAM, EVERY 6 HRS AS NEEDED
     Route: 065
  6. SUCRALFATE [Concomitant]
     Active Substance: SUCRALFATE
     Indication: Product used for unknown indication
     Dosage: 1000 MILLIGRAM, QID
     Route: 065

REACTIONS (14)
  - Lactic acidosis [Recovered/Resolved]
  - Hypertransaminasaemia [Recovered/Resolved]
  - Coagulopathy [Recovered/Resolved]
  - Tachycardia [Recovered/Resolved]
  - Hypoxia [Recovered/Resolved]
  - Multiple organ dysfunction syndrome [Recovered/Resolved]
  - Hypotension [Recovered/Resolved]
  - Renal impairment [Recovered/Resolved]
  - Pancytopenia [Recovered/Resolved]
  - Hepatic function abnormal [Recovered/Resolved]
  - Gastrointestinal disorder [Recovered/Resolved]
  - Acute kidney injury [Recovered/Resolved]
  - Drug interaction [Unknown]
  - Toxicity to various agents [Unknown]
